FAERS Safety Report 15221874 (Version 1)
Quarter: 2018Q3

REPORT INFORMATION
  Report Type: Spontaneous
  Country: US (occurrence: US)
  Receive Date: 20180705
  Receipt Date: 20180705
  Transmission Date: 20181010
  Serious: No
  Sender: FDA-Public Use
  Company Number: None

PATIENT
  Age: 53 Year
  Sex: Female

DRUGS (1)
  1. HARVONI [Suspect]
     Active Substance: LEDIPASVIR\SOFOSBUVIR
     Dates: start: 20180629, end: 20180629

REACTIONS (7)
  - Loss of consciousness [None]
  - Abdominal discomfort [None]
  - Headache [None]
  - Nausea [None]
  - Fatigue [None]
  - Diarrhoea [None]
  - Vomiting [None]

NARRATIVE: CASE EVENT DATE: 20180629
